FAERS Safety Report 14065654 (Version 1)
Quarter: 2017Q4

REPORT INFORMATION
  Report Type: Spontaneous
  Country: DE (occurrence: DE)
  Receive Date: 20171009
  Receipt Date: 20171009
  Transmission Date: 20180321
  Serious: Yes (Hospitalization)
  Sender: FDA-Public Use
  Company Number: GXKR2017DE004614

PATIENT
  Age: 25 Year
  Sex: Female
  Weight: 115 kg

DRUGS (5)
  1. CLEXANE [Concomitant]
     Active Substance: ENOXAPARIN SODIUM
     Indication: ANTIPHOSPHOLIPID SYNDROME
     Dosage: 0.6 DF, BID
     Route: 058
     Dates: start: 20170827, end: 20170828
  2. CEFPODOXIME [Suspect]
     Active Substance: CEFPODOXIME
     Indication: TOOTH ABSCESS
     Dosage: 20 MG, UNK
     Route: 065
     Dates: start: 20170822, end: 20170827
  3. UNACID [Concomitant]
     Active Substance: AMPICILLIN SODIUM\SULBACTAM SODIUM
     Indication: TOOTH ABSCESS
     Dosage: 1.5 DF, TID DURATION OF 2 DAYS
     Route: 042
     Dates: start: 20170827, end: 20170828
  4. XARELTO [Concomitant]
     Active Substance: RIVAROXABAN
     Indication: PELVIC VENOUS THROMBOSIS
     Dosage: 20 MG, UNK
     Route: 048
     Dates: start: 201610, end: 20170826
  5. PREDNISOLONE. [Concomitant]
     Active Substance: PREDNISOLONE
     Indication: VASCULITIS
     Dosage: 115 MG, UNK
     Route: 042
     Dates: start: 20170826, end: 20170828

REACTIONS (1)
  - Purpura [Not Recovered/Not Resolved]

NARRATIVE: CASE EVENT DATE: 20170824
